FAERS Safety Report 25069280 (Version 1)
Quarter: 2025Q1

REPORT INFORMATION
  Report Type: Spontaneous
  Country: IN (occurrence: IN)
  Receive Date: 20250312
  Receipt Date: 20250312
  Transmission Date: 20250409
  Serious: Yes (Life-Threatening, Hospitalization)
  Sender: MYLAN
  Company Number: IN-MYLANLABS-2025M1020078

PATIENT
  Age: 33 Year
  Sex: Female

DRUGS (7)
  1. ROCURONIUM [Suspect]
     Active Substance: ROCURONIUM BROMIDE
     Indication: Anaesthesia
  2. ATRACURIUM [Suspect]
     Active Substance: ATRACURIUM
     Indication: Anaesthesia
  3. ETOMIDATE [Suspect]
     Active Substance: ETOMIDATE
     Indication: Anaesthesia
  4. FENTANYL [Suspect]
     Active Substance: FENTANYL
     Indication: Anaesthesia
  5. NITROUS OXIDE [Suspect]
     Active Substance: NITROUS OXIDE
     Indication: Anaesthesia
  6. SEVOFLURANE [Suspect]
     Active Substance: SEVOFLURANE
     Indication: Anaesthesia
  7. DOBUTAMINE [Concomitant]
     Active Substance: DOBUTAMINE HYDROCHLORIDE
     Indication: Product used for unknown indication

REACTIONS (1)
  - Cardiac output decreased [Unknown]
